FAERS Safety Report 7727471-7 (Version None)
Quarter: 2011Q3

REPORT INFORMATION
  Report Type: 
  Country: None (occurrence: None)
  Receive Date: 20110902
  Receipt Date: 20110830
  Transmission Date: 20111222
  Serious: Yes (Hospitalization, Other)
  Sender: FDA-Public Use
  Company Number: US-ABBOTT-11P-163-0850136-00

PATIENT
  Age: 47 Year
  Sex: Male
  Weight: 88.076 kg

DRUGS (17)
  1. DILANTIN [Suspect]
     Dosage: AT NIGHT, DAILY
     Route: 048
     Dates: start: 20090101
  2. KEPPRA [Concomitant]
     Indication: LOSS OF CONSCIOUSNESS
  3. DILANTIN [Suspect]
     Dosage: ALTERNATE WITH 450MG  AND 400MG AT NIGHT
     Route: 048
     Dates: start: 20080101, end: 20090101
  4. TYLENOL-500 [Concomitant]
     Indication: NASOPHARYNGITIS
  5. KEPPRA [Concomitant]
     Indication: STATUS EPILEPTICUS
  6. DILANTIN [Suspect]
     Indication: GRAND MAL CONVULSION
     Route: 048
     Dates: start: 19810101, end: 19820101
  7. DILANTIN [Suspect]
     Dosage: 4 CAPSULES AT NIGHT
     Dates: start: 20040801, end: 20080101
  8. DILANTIN [Suspect]
     Dosage: 600MG DAILY, 300MG IN AM, 300MG IN PM
  9. BENADRYL [Concomitant]
     Indication: SEASONAL ALLERGY
  10. TYLENOL-500 [Concomitant]
     Indication: INFLUENZA
  11. SYNTHROID [Suspect]
     Indication: PRODUCT USED FOR UNKNOWN INDICATION
     Route: 048
     Dates: start: 20100810
  12. KLONOPIN [Concomitant]
     Indication: LOSS OF CONSCIOUSNESS
  13. FLONASE [Concomitant]
     Indication: MULTIPLE ALLERGIES
  14. BENADRYL [Concomitant]
     Indication: MULTIPLE ALLERGIES
  15. KLONOPIN [Concomitant]
     Indication: STATUS EPILEPTICUS
  16. DILANTIN [Suspect]
     Dosage: 2 100MG CAPS IN AM, 3 100MG CAPS IN PM
     Dates: start: 20100708
  17. KEPPRA [Concomitant]
     Indication: CONVULSION

REACTIONS (3)
  - LOSS OF CONSCIOUSNESS [None]
  - FATIGUE [None]
  - PNEUMONIA [None]
